FAERS Safety Report 20724802 (Version 1)
Quarter: 2022Q2

REPORT INFORMATION
  Report Type: Spontaneous
  Country: US (occurrence: None)
  Receive Date: 20220418
  Receipt Date: 20220418
  Transmission Date: 20220721
  Serious: No
  Sender: FDA-Public Use
  Company Number: None

PATIENT
  Age: 34 Year
  Sex: Female
  Weight: 59 kg

DRUGS (1)
  1. AJOVY [Suspect]
     Active Substance: FREMANEZUMAB-VFRM
     Indication: Migraine
     Dates: start: 20220308

REACTIONS (4)
  - Hyperhidrosis [None]
  - Chills [None]
  - Tremor [None]
  - Feeling jittery [None]

NARRATIVE: CASE EVENT DATE: 20220410
